FAERS Safety Report 5906110-1 (Version None)
Quarter: 2008Q4

REPORT INFORMATION
  Report Type: 
  Country: None (occurrence: None)
  Receive Date: 20081002
  Receipt Date: 20080924
  Transmission Date: 20090506
  Serious: Yes (Hospitalization)
  Sender: FDA-Public Use
  Company Number: PHBS2008SE03471

PATIENT
  Sex: Male

DRUGS (3)
  1. RITALIN [Suspect]
     Dosage: 40 MG, 5QD
     Route: 048
  2. ANTABUSE [Concomitant]
  3. XANOR [Concomitant]

REACTIONS (12)
  - AGGRESSION [None]
  - ANOREXIA [None]
  - ANXIETY [None]
  - CONFUSIONAL STATE [None]
  - DEPRESSION [None]
  - DRUG ABUSE [None]
  - FALL [None]
  - HYPERTENSION [None]
  - INSOMNIA [None]
  - MEMORY IMPAIRMENT [None]
  - RED BLOOD CELL COUNT INCREASED [None]
  - RESTLESSNESS [None]
